FAERS Safety Report 8973035 (Version 1)
Quarter: 2012Q4

REPORT INFORMATION
  Report Type: 
  Country: US (occurrence: US)
  Receive Date: 20121218
  Receipt Date: 20121218
  Transmission Date: 20130627
  Serious: Yes (Other)
  Sender: FDA-Public Use
  Company Number: US-BAYER-2012-132429

PATIENT
  Age: 50 Year

DRUGS (1)
  1. MAGNEVIST [Suspect]

REACTIONS (3)
  - Dystonia [None]
  - Hypoaesthesia [None]
  - Paraesthesia [None]
